FAERS Safety Report 21821911 (Version 1)
Quarter: 2023Q1

REPORT INFORMATION
  Report Type: Spontaneous
  Country: JP (occurrence: JP)
  Receive Date: 20230105
  Receipt Date: 20230105
  Transmission Date: 20230418
  Serious: Yes (Hospitalization, Other)
  Sender: FDA-Public Use
  Company Number: JP-ASTELLAS-2022JP009423

PATIENT
  Age: 7 Decade
  Sex: Male

DRUGS (4)
  1. PROGRAF [Suspect]
     Active Substance: TACROLIMUS
     Indication: Interstitial lung disease
     Dosage: 3 MG/DAY, UNKNOWN FREQ.
     Route: 065
  2. PROGRAF [Suspect]
     Active Substance: TACROLIMUS
     Indication: Dermatomyositis
  3. PREDNISOLONE [Concomitant]
     Active Substance: PREDNISOLONE
     Indication: Interstitial lung disease
     Dosage: 5 MG/DAY, UNKNOWN FREQ.
     Route: 065
  4. PREDNISOLONE [Concomitant]
     Active Substance: PREDNISOLONE
     Indication: Dermatomyositis

REACTIONS (3)
  - Serous retinal detachment [Recovering/Resolving]
  - Lung adenocarcinoma [Recovering/Resolving]
  - Malignant neoplasm of choroid [Recovering/Resolving]
